FAERS Safety Report 10073122 (Version 1)
Quarter: 2014Q2

REPORT INFORMATION
  Report Type: Spontaneous
  Country: US (occurrence: US)
  Receive Date: 20140411
  Receipt Date: 20140411
  Transmission Date: 20141212
  Serious: Yes (Other)
  Sender: FDA-Public Use
  Company Number: US-PFIZER INC-2014100234

PATIENT
  Age: 52 Year
  Sex: Female
  Weight: 136.5 kg

DRUGS (2)
  1. PROTONIX [Suspect]
     Indication: IRRITABLE BOWEL SYNDROME
     Dosage: 40 MG, DAILY
  2. PROTONIX [Suspect]
     Indication: GASTROOESOPHAGEAL REFLUX DISEASE

REACTIONS (1)
  - Systemic lupus erythematosus [Not Recovered/Not Resolved]
